FAERS Safety Report 6377459-6 (Version None)
Quarter: 2009Q3

REPORT INFORMATION
  Report Type: 
  Country: None (occurrence: None)
  Receive Date: 20090923
  Receipt Date: 20090923
  Transmission Date: 20100115
  Serious: Yes (Hospitalization)
  Sender: FDA-Public Use
  Company Number: None

PATIENT
  Age: 62 Year
  Sex: Male
  Weight: 77.5 kg

DRUGS (7)
  1. TACROLIMUS [Suspect]
     Indication: IMMUNOSUPPRESSION
     Dosage: 40MG PO BID HOME
     Route: 048
  2. LAMISIL [Concomitant]
  3. METOPROLOL SUCCINATE [Concomitant]
  4. M.V.I. [Concomitant]
  5. NEXIUM [Concomitant]
  6. PREDNISONE TAB [Concomitant]
  7. BACTRIM [Concomitant]

REACTIONS (2)
  - BLOOD CREATININE INCREASED [None]
  - BLOOD POTASSIUM INCREASED [None]
